FAERS Safety Report 20474806 (Version 1)
Quarter: 2022Q1

REPORT INFORMATION
  Report Type: Spontaneous
  Country: US (occurrence: None)
  Receive Date: 20220214
  Receipt Date: 20220214
  Transmission Date: 20220423
  Serious: Yes (Other)
  Sender: FDA-Public Use
  Company Number: None

PATIENT
  Age: 1 Year
  Sex: Female

DRUGS (1)
  1. THALOMID [Suspect]
     Active Substance: THALIDOMIDE
     Dosage: 50 MG QD ORAL
     Route: 048
     Dates: start: 20220210

REACTIONS (1)
  - Off label use [None]

NARRATIVE: CASE EVENT DATE: 20220214
